FAERS Safety Report 5982146-X (Version None)
Quarter: 2008Q4

REPORT INFORMATION
  Report Type: 
  Country: None (occurrence: None)
  Receive Date: 20081203
  Receipt Date: 20081124
  Transmission Date: 20090506
  Serious: No
  Sender: FDA-Public Use
  Company Number: US025094

PATIENT
  Age: 60 Year
  Sex: Male
  Weight: 99.7913 kg

DRUGS (7)
  1. FENTORA [Suspect]
     Indication: PAIN
     Dosage: 400 UG QID BUCCAL
     Route: 002
  2. ACTIQ [Suspect]
     Indication: PAIN
     Dosage: UG TID PRN BUCCAL
     Route: 002
  3. DURAGESIC-100 [Concomitant]
  4. AMRIX [Concomitant]
  5. TOPAMAX [Concomitant]
  6. BENICAR [Concomitant]
  7. THYROID MEDICATION [Concomitant]

REACTIONS (7)
  - DRUG PRESCRIBING ERROR [None]
  - FATIGUE [None]
  - FLUSHING [None]
  - NIGHT BLINDNESS [None]
  - TACHYCARDIA [None]
  - TREMOR [None]
  - VISION BLURRED [None]
